FAERS Safety Report 4644367-8 (Version None)
Quarter: 2005Q2

REPORT INFORMATION
  Report Type: 
  Country: None (occurrence: None)
  Receive Date: 20050331
  Receipt Date: 20041221
  Transmission Date: 20051028
  Serious: No
  Sender: FDA-Public Use
  Company Number: 04P-163-0284407-00

PATIENT
  Age: 61 Year
  Sex: Male
  Weight: 68.9467 kg

DRUGS (6)
  1. HUMIRA [Suspect]
     Indication: RHEUMATOID ARTHRITIS
     Dosage: 40 MG, 1 IN 2 WK, SUBCUTANEOUS
     Route: 058
     Dates: start: 20041001
  2. REGULAR INSULIN [Concomitant]
  3. ISOPHANE INSULIN [Concomitant]
  4. LEFLUNOMIDE [Concomitant]
  5. VALSARTAN [Concomitant]
  6. FOLIC ACID [Concomitant]

REACTIONS (1)
  - PROSTATIC SPECIFIC ANTIGEN INCREASED [None]
